FAERS Safety Report 11715298 (Version 2)
Quarter: 2015Q4

REPORT INFORMATION
  Report Type: Spontaneous
  Country: US (occurrence: US)
  Receive Date: 20151104
  Receipt Date: 20151110
  Transmission Date: 20160304
  Serious: No
  Sender: FDA-Public Use
  Company Number: US-ELI_LILLY_AND_COMPANY-US201012003959

PATIENT
  Age: 60 Year
  Sex: Female

DRUGS (6)
  1. CAFFEINE. [Concomitant]
     Active Substance: CAFFEINE
  2. FORTEO [Suspect]
     Active Substance: TERIPARATIDE
     Dosage: 20 UG, QD
  3. FORTEO [Suspect]
     Active Substance: TERIPARATIDE
     Dosage: 20 UG, QD
  4. FORTEO [Suspect]
     Active Substance: TERIPARATIDE
     Indication: OSTEOPOROSIS
     Dosage: 20 UG, DAILY (1/D)
     Dates: start: 20101107, end: 20101207
  5. HYDROCHLOROTHIAZIDE. [Concomitant]
     Active Substance: HYDROCHLOROTHIAZIDE
     Indication: BLOOD CALCIUM ABNORMAL
  6. FORTEO [Suspect]
     Active Substance: TERIPARATIDE
     Dosage: 20 UG, QD

REACTIONS (11)
  - Feeling abnormal [Unknown]
  - Blood calcium increased [Unknown]
  - Headache [Recovered/Resolved]
  - Drug dose omission [Unknown]
  - Insomnia [Recovered/Resolved]
  - Heart rate increased [Recovering/Resolving]
  - Blood parathyroid hormone decreased [Unknown]
  - Medication error [Unknown]
  - Fatigue [Unknown]
  - Urine calcium increased [Unknown]
  - Drug ineffective [Unknown]

NARRATIVE: CASE EVENT DATE: 201011
